FAERS Safety Report 7416322-6 (Version None)
Quarter: 2011Q2

REPORT INFORMATION
  Report Type: 
  Country: None (occurrence: None)
  Receive Date: 20110414
  Receipt Date: 20110405
  Transmission Date: 20111010
  Serious: Yes (Other)
  Sender: FDA-Public Use
  Company Number: CA-ASTRAZENECA-2011SE20010

PATIENT
  Age: 42 Year
  Sex: Male

DRUGS (1)
  1. CRESTOR [Suspect]
     Route: 048
     Dates: start: 20110101, end: 20110301

REACTIONS (7)
  - DYSPNOEA [None]
  - CARDIAC FAILURE CONGESTIVE [None]
  - ASTHENIA [None]
  - BLOOD PRESSURE INCREASED [None]
  - HEART RATE INCREASED [None]
  - COUGH [None]
  - CHEST DISCOMFORT [None]
